FAERS Safety Report 23026120 (Version 1)
Quarter: 2023Q4

REPORT INFORMATION
  Report Type: Spontaneous
  Country: US (occurrence: US)
  Receive Date: 20231004
  Receipt Date: 20231004
  Transmission Date: 20240109
  Serious: No
  Sender: FDA-Public Use
  Company Number: US-BRISTOL-MYERS SQUIBB COMPANY-2023-140510

PATIENT
  Age: 81 Year
  Sex: Female
  Weight: 75.2 kg

DRUGS (1)
  1. REVLIMID [Suspect]
     Active Substance: LENALIDOMIDE
     Indication: Plasma cell myeloma
     Dosage: DOSE : 5MG;     FREQ : ONE DAILY 21 DAYS ON 7 DAYS OFF
     Route: 048

REACTIONS (1)
  - Nasopharyngitis [Recovered/Resolved]
